FAERS Safety Report 9157872 (Version 2)
Quarter: 2013Q2

REPORT INFORMATION
  Report Type: Spontaneous
  Country: US (occurrence: US)
  Receive Date: 20130312
  Receipt Date: 20130417
  Transmission Date: 20140414
  Serious: Yes (Hospitalization, Other)
  Sender: FDA-Public Use
  Company Number: US-ELI_LILLY_AND_COMPANY-US201203001051

PATIENT
  Age: 66 Year
  Sex: Female

DRUGS (2)
  1. FORTEO [Suspect]
     Indication: OSTEOPOROSIS
     Dosage: 20 UG, QD
     Route: 058
     Dates: start: 201102
  2. FORTEO [Suspect]
     Dosage: 20 UG, QD
     Route: 058

REACTIONS (8)
  - Urinary tract infection [Unknown]
  - Sepsis [Unknown]
  - Fall [Unknown]
  - Hot flush [Unknown]
  - Rheumatoid arthritis [Unknown]
  - Cystitis [Unknown]
  - Hyperhidrosis [Unknown]
  - Injection site bruising [Unknown]
